FAERS Safety Report 4895701-5 (Version None)
Quarter: 2006Q1

REPORT INFORMATION
  Report Type: 
  Country: None (occurrence: None)
  Receive Date: 20060125
  Receipt Date: 20060112
  Transmission Date: 20060701
  Serious: Yes (Other)
  Sender: FDA-Public Use
  Company Number: 220850

PATIENT
  Age: 33 Year
  Sex: Female

DRUGS (3)
  1. RAPTIVA [Suspect]
     Indication: PSORIASIS
     Dosage: 0.7 ML, 1/WEEK, SUBCUTANEOUS
     Route: 058
     Dates: start: 20041101, end: 20050101
  2. RAPTIVA [Suspect]
     Indication: PSORIASIS
     Dosage: 0.7 ML, 1/WEEK, SUBCUTANEOUS
     Route: 058
     Dates: start: 20050905, end: 20051220
  3. ANTIBIOTICS (ANTIBIOTICS NOS) [Concomitant]

REACTIONS (5)
  - ABSCESS [None]
  - LYMPHADENITIS [None]
  - LYMPHADENOPATHY [None]
  - NECROSIS [None]
  - PARANASAL SINUS DISCOMFORT [None]
